FAERS Safety Report 10567956 (Version 1)
Quarter: 2014Q4

REPORT INFORMATION
  Report Type: Spontaneous
  Country: US (occurrence: None)
  Receive Date: 20141104
  Receipt Date: 20141104
  Transmission Date: 20150529
  Serious: Yes (Life-Threatening, Hospitalization, Other)
  Sender: FDA-Public Use
  Company Number: ADDR-2014-02015

PATIENT
  Age: 35 Year
  Sex: Male

DRUGS (3)
  1. LIORESAL [Suspect]
     Active Substance: BACLOFEN
     Indication: HEAD INJURY
  2. LIORESAL [Suspect]
     Active Substance: BACLOFEN
     Indication: MUSCLE SPASTICITY
  3. LIORESAL [Suspect]
     Active Substance: BACLOFEN
     Indication: BRAIN INJURY

REACTIONS (11)
  - Cognitive disorder [None]
  - Muscle spasms [None]
  - Withdrawal syndrome [None]
  - Bacterial infection [None]
  - Implant site abscess [None]
  - Agitation [None]
  - Insomnia [None]
  - Impaired healing [None]
  - Blood pressure increased [None]
  - Hypertonia [None]
  - Tachycardia [None]
